FAERS Safety Report 25613243 (Version 1)
Quarter: 2025Q3

REPORT INFORMATION
  Report Type: Spontaneous
  Country: US (occurrence: None)
  Receive Date: 20250727
  Receipt Date: 20250727
  Transmission Date: 20251020
  Serious: Yes (Disabling)
  Sender: FDA-CTU
  Company Number: None

PATIENT
  Age: 80 Year
  Sex: Female

DRUGS (9)
  1. DEFINITY [Suspect]
     Active Substance: PERFLUTREN
     Dates: start: 20240625, end: 20240625
  2. LOSARTAN [Concomitant]
     Active Substance: LOSARTAN
  3. hydrochloriztride [Concomitant]
  4. CARVEDILOL [Concomitant]
     Active Substance: CARVEDILOL
  5. LEVOTHYROXINE [Concomitant]
     Active Substance: LEVOTHYROXINE
  6. PANTOPRAZOLE [Concomitant]
     Active Substance: PANTOPRAZOLE
  7. TIMOLOL [Concomitant]
     Active Substance: TIMOLOL
  8. ketpcpnozole [Concomitant]
  9. ADVIL [Concomitant]
     Active Substance: IBUPROFEN

REACTIONS (6)
  - Contrast media reaction [None]
  - Back pain [None]
  - Movement disorder [None]
  - Presyncope [None]
  - Muscular weakness [None]
  - Mobility decreased [None]

NARRATIVE: CASE EVENT DATE: 20240625
